FAERS Safety Report 5739419-5 (Version None)
Quarter: 2008Q2

REPORT INFORMATION
  Report Type: 
  Country: None (occurrence: None)
  Receive Date: 20080515
  Receipt Date: 20080506
  Transmission Date: 20081010
  Serious: Yes (Death, Hospitalization, Other)
  Sender: FDA-Public Use
  Company Number: AR-PFIZER INC-2008039206

PATIENT
  Age: 55 Year
  Sex: Male

DRUGS (1)
  1. SUTENT [Suspect]
     Indication: RENAL CANCER METASTATIC
     Dosage: DAILY DOSE:50MG-FREQ:4/2 SCHEDULE
     Dates: start: 20061212, end: 20070814

REACTIONS (8)
  - ABDOMINAL PAIN [None]
  - ANOREXIA [None]
  - BONE PAIN [None]
  - CONSTIPATION [None]
  - HYPOTENSION [None]
  - INTESTINAL PERFORATION [None]
  - LOSS OF CONSCIOUSNESS [None]
  - SEPSIS [None]
